FAERS Safety Report 7908615-0 (Version None)
Quarter: 2011Q4

REPORT INFORMATION
  Report Type: 
  Country: None (occurrence: None)
  Receive Date: 20111111
  Receipt Date: 20111104
  Transmission Date: 20120403
  Serious: Yes (Other)
  Sender: FDA-Public Use
  Company Number: CA-PFIZER INC-2011270390

PATIENT
  Age: 51 Year
  Sex: Male

DRUGS (1)
  1. DETROL LA [Suspect]
     Dosage: 4 MG, 1X/DAY
     Dates: start: 20111102

REACTIONS (5)
  - HYPERSENSITIVITY [None]
  - LIP SWELLING [None]
  - RASH GENERALISED [None]
  - PYREXIA [None]
  - HYPERHIDROSIS [None]
